FAERS Safety Report 9662206 (Version 2)
Quarter: 2013Q4

REPORT INFORMATION
  Report Type: Spontaneous
  Country: US (occurrence: US)
  Receive Date: 20131031
  Receipt Date: 20131031
  Transmission Date: 20140711
  Serious: No
  Sender: FDA-Public Use
  Company Number: US-PURDUE-USA-2010-0063650

PATIENT
  Sex: Male

DRUGS (1)
  1. OXYCONTIN (NDA 22-272) [Suspect]
     Indication: PAIN
     Dosage: 1040 MG, DAILY
     Dates: start: 20100918

REACTIONS (11)
  - Product solubility abnormal [Unknown]
  - Breakthrough pain [Unknown]
  - Drug ineffective [Unknown]
  - Constipation [Unknown]
  - Anxiety [Unknown]
  - Abdominal distension [Unknown]
  - Dyspepsia [Unknown]
  - Abdominal discomfort [Unknown]
  - Vomiting [Unknown]
  - Feeling abnormal [Unknown]
  - Inadequate analgesia [Unknown]
